FAERS Safety Report 4513062-8 (Version None)
Quarter: 2004Q4

REPORT INFORMATION
  Report Type: 
  Country: None (occurrence: None)
  Receive Date: 20040928
  Receipt Date: 20040706
  Transmission Date: 20050328
  Serious: No
  Sender: FDA-Public Use
  Company Number: 04P-163-0266720-00

PATIENT
  Age: 62 Year
  Sex: Female

DRUGS (9)
  1. HUMIRA [Suspect]
     Indication: RHEUMATOID ARTHRITIS
     Dosage: 40 MG, 1 IN 2 WK, SUBCUTANEOUS
     Route: 058
     Dates: start: 20031201
  2. FOLIC ACID [Concomitant]
  3. METHOTREXATE [Concomitant]
  4. GLUCOPHAGE [Concomitant]
  5. ATORVASTATIN CALCIUM [Concomitant]
  6. VERAPAMIL [Concomitant]
  7. ALPRAZOLAM [Concomitant]
  8. EFFEXOR [Concomitant]
  9. BUPROPION HYDROCHLORIDE [Concomitant]

REACTIONS (1)
  - ASTHENIA [None]
